FAERS Safety Report 22018395 (Version 2)
Quarter: 2023Q1

REPORT INFORMATION
  Report Type: Spontaneous
  Country: DE (occurrence: DE)
  Receive Date: 20230221
  Receipt Date: 20230302
  Transmission Date: 20230418
  Serious: Yes (Other)
  Sender: FDA-Public Use
  Company Number: DE-Santen Oy-2023-DEU-001483

PATIENT
  Age: 78 Year
  Sex: Female

DRUGS (2)
  1. CYCLOSPORINE [Suspect]
     Active Substance: CYCLOSPORINE
     Indication: Punctate keratitis
     Dosage: TWICE A DAY
     Route: 047
     Dates: start: 2021
  2. DORZOLAMIDE HYDROCHLORIDE [Suspect]
     Active Substance: DORZOLAMIDE HYDROCHLORIDE
     Indication: Open angle glaucoma
     Dosage: TWICE A DAY
     Route: 047

REACTIONS (9)
  - Glaucoma surgery [Unknown]
  - Eye irritation [Recovered/Resolved]
  - Ocular hyperaemia [Not Recovered/Not Resolved]
  - Blepharitis [Unknown]
  - Off label use [Unknown]
  - Prescribed underdose [Unknown]
  - Off label use [Unknown]
  - Prescribed overdose [Unknown]
  - Therapy interrupted [Unknown]

NARRATIVE: CASE EVENT DATE: 20210101
